FAERS Safety Report 8530710-6 (Version None)
Quarter: 2012Q3

REPORT INFORMATION
  Report Type: 
  Country: None (occurrence: None)
  Receive Date: 20120723
  Receipt Date: 20120719
  Transmission Date: 20120928
  Serious: Yes (Hospitalization)
  Sender: FDA-Public Use
  Company Number: BE-EISAI INC-E2020-10896-SPO-BE

PATIENT
  Sex: Female
  Weight: 68 kg

DRUGS (2)
  1. ARICEPT [Suspect]
     Dosage: UNKNOWN
     Route: 048
     Dates: start: 20120601
  2. ARICEPT [Suspect]
     Route: 048
     Dates: start: 20111215, end: 20120601

REACTIONS (4)
  - CARDIAC DISORDER [None]
  - CONFUSIONAL STATE [None]
  - ATRIAL FIBRILLATION [None]
  - WITHDRAWAL SYNDROME [None]
